FAERS Safety Report 21909661 (Version 2)
Quarter: 2023Q1

REPORT INFORMATION
  Report Type: Spontaneous
  Country: DE (occurrence: DE)
  Receive Date: 20230125
  Receipt Date: 20230317
  Transmission Date: 20230418
  Serious: Yes (Death, Life-Threatening, Hospitalization)
  Sender: FDA-Public Use
  Company Number: DE-BAYER-2023A010338

PATIENT
  Age: 88 Year
  Sex: Male

DRUGS (2)
  1. ULTRAVIST [Suspect]
     Active Substance: IOPROMIDE
     Indication: Computerised tomogram
     Dosage: 100 ML, ONCE
     Route: 042
     Dates: start: 20230120, end: 20230120
  2. ULTRAVIST [Suspect]
     Active Substance: IOPROMIDE
     Indication: Pulmonary embolism

REACTIONS (5)
  - Cardiovascular insufficiency [Fatal]
  - Urticaria [Fatal]
  - Tachycardia [Fatal]
  - Somnolence [Fatal]
  - Resuscitation [Fatal]

NARRATIVE: CASE EVENT DATE: 20230120
